FAERS Safety Report 23134452 (Version 1)
Quarter: 2023Q4

REPORT INFORMATION
  Report Type: Spontaneous
  Country: US (occurrence: None)
  Receive Date: 20231031
  Receipt Date: 20231031
  Transmission Date: 20240110
  Serious: Yes (Disabling)
  Sender: FDA-Public Use
  Company Number: None

PATIENT
  Age: 63 Year
  Sex: Male
  Weight: 81 kg

DRUGS (6)
  1. CIPRO [Suspect]
     Active Substance: CIPROFLOXACIN HYDROCHLORIDE
     Indication: Urinary tract infection
     Dates: start: 19940818, end: 19941210
  2. MAGNESIUM GLYCINATE [Concomitant]
     Active Substance: MAGNESIUM GLYCINATE
  3. buffered vitamin C [Concomitant]
  4. LEVOMEFOLATE CALCIUM [Concomitant]
     Active Substance: LEVOMEFOLATE CALCIUM
  5. P-5-P [Concomitant]
  6. VITAMIN D [Concomitant]
     Active Substance: VITAMIN D NOS

REACTIONS (11)
  - Anxiety [None]
  - Dissociation [None]
  - Insomnia [None]
  - Fatigue [None]
  - Brain fog [None]
  - Depression [None]
  - Tendon disorder [None]
  - Muscular weakness [None]
  - Muscle atrophy [None]
  - Neuropathy peripheral [None]
  - Connective tissue disorder [None]

NARRATIVE: CASE EVENT DATE: 19940818
